FAERS Safety Report 16242482 (Version 3)
Quarter: 2019Q4

REPORT INFORMATION
  Report Type: Spontaneous
  Country: JP (occurrence: JP)
  Receive Date: 20190426
  Receipt Date: 20191008
  Transmission Date: 20200122
  Serious: Yes (Hospitalization, Other)
  Sender: FDA-Public Use
  Company Number: JP-009507513-1901JPN001456

PATIENT
  Age: 47 Year
  Sex: Female
  Weight: 54.8 kg

DRUGS (15)
  1. FARMORUBICIN [Concomitant]
     Active Substance: EPIRUBICIN HYDROCHLORIDE
     Dosage: UNK
     Dates: start: 20181004, end: 20190509
  2. PROTECADIN [Concomitant]
     Active Substance: LAFUTIDINE
     Dosage: UNK
     Dates: start: 20121226
  3. TRAMAL [Concomitant]
     Active Substance: TRAMADOL
     Dosage: FORMULATION: GRAIN
     Dates: start: 20181004, end: 20181025
  4. CODEINE PHOSPHATE [Concomitant]
     Active Substance: CODEINE PHOSPHATE
     Dosage: UNK
     Dates: start: 20180918
  5. SAIREI-TO [Concomitant]
     Active Substance: UNSPECIFIED INGREDIENT
     Dosage: UNK
     Dates: start: 20130813
  6. CALONAL [Concomitant]
     Active Substance: ACETAMINOPHEN
     Dosage: UNK
     Dates: start: 20121217
  7. ALOXI [Suspect]
     Active Substance: PALONOSETRON HYDROCHLORIDE
     Indication: PROPHYLAXIS OF NAUSEA AND VOMITING
     Dosage: 0.75 MG
     Route: 041
     Dates: start: 20181004, end: 20190509
  8. CELECOX [Concomitant]
     Active Substance: CELECOXIB
     Dosage: UNK
     Dates: start: 20130201
  9. DEXART [Concomitant]
     Active Substance: DEXAMETHASONE SODIUM PHOSPHATE
     Dosage: UNK
     Dates: start: 20181004, end: 20190509
  10. ALFAROL [Concomitant]
     Active Substance: ALFACALCIDOL
     Dosage: UNK
     Dates: start: 20121217
  11. EMEND [Suspect]
     Active Substance: APREPITANT
     Indication: PROPHYLAXIS OF NAUSEA AND VOMITING
     Dosage: 125 MILLIGRAM(9 TIMES)
     Route: 048
     Dates: start: 20181004, end: 20190509
  12. ENDOXAN [Concomitant]
     Active Substance: CYCLOPHOSPHAMIDE
     Dosage: UNK
     Dates: start: 20181004, end: 20190509
  13. MUCOSTA [Concomitant]
     Active Substance: REBAMIPIDE
     Dosage: UNK
     Dates: start: 20121217
  14. EMEND [Suspect]
     Active Substance: APREPITANT
     Dosage: 80 MILLIGRAM
     Route: 048
     Dates: start: 20181005, end: 20181005
  15. ASPARA CA [Concomitant]
     Dosage: UNK
     Dates: start: 20121217

REACTIONS (7)
  - Febrile neutropenia [Unknown]
  - Tremor [Recovered/Resolved]
  - Somnolence [Recovered/Resolved]
  - Stomatitis [Unknown]
  - Dizziness [Recovered/Resolved]
  - Writer^s cramp [Recovered/Resolved]
  - Muscle spasms [Recovered/Resolved]

NARRATIVE: CASE EVENT DATE: 20181004
